FAERS Safety Report 11492971 (Version 2)
Quarter: 2015Q3

REPORT INFORMATION
  Report Type: Spontaneous
  Country: FR (occurrence: FR)
  Receive Date: 20150911
  Receipt Date: 20150924
  Transmission Date: 20151125
  Serious: Yes (Hospitalization)
  Sender: FDA-Public Use
  Company Number: FR-PFIZER INC-2015302169

PATIENT
  Age: 88 Year
  Sex: Female

DRUGS (12)
  1. AIROMIR [Suspect]
     Active Substance: ALBUTEROL SULFATE
     Dosage: UNK
     Route: 048
  2. NOVONORM [Suspect]
     Active Substance: REPAGLINIDE
     Dosage: 0.5 MG, 3X/DAY
     Route: 065
  3. AERIUS [Suspect]
     Active Substance: DESLORATADINE
     Dosage: 1 DF, DAILY
     Route: 065
  4. GLYCEROL\PARAFFIN [Suspect]
     Active Substance: GLYCERIN\PARAFFIN
     Dosage: UNK
     Route: 065
  5. BISOCE [Concomitant]
     Active Substance: BISOPROLOL
     Dosage: 2.5 MG, 1X/DAY (MORNING)
  6. SYMBICORT [Suspect]
     Active Substance: BUDESONIDE\FORMOTEROL FUMARATE DIHYDRATE
     Dosage: UNK, 160/4.5 2 UG INHALATIONS IN THE MORNING AND 2
     Route: 065
  7. EFFERALGAN [Suspect]
     Active Substance: ACETAMINOPHEN
     Dosage: 500 MG, UNK, 2 TO 3 TIMES PER DAY USED AS REQUIRED
  8. DUOPLAVIN [Suspect]
     Active Substance: ASPIRIN\CLOPIDOGREL
     Dosage: 75 MG/75 MG, DAILY (MORNING)
  9. PRAVASTATIN SODIUM. [Suspect]
     Active Substance: PRAVASTATIN SODIUM
     Dosage: 40 MG, DAILY (EVENING)
     Route: 065
  10. ZYMA-D2 [Concomitant]
     Active Substance: ERGOCALCIFEROL
     Dosage: 80000 IU, (VIAL PER YEAR)
  11. RAMIPRIL. [Suspect]
     Active Substance: RAMIPRIL
     Dosage: 2.5 MG, DAILY (EVENING)
     Route: 065
  12. AMINOPHYLLINE. [Suspect]
     Active Substance: AMINOPHYLLINE
     Dosage: 200 MG, 2X/DAY
     Route: 065
     Dates: end: 20150724

REACTIONS (8)
  - Decreased appetite [Recovered/Resolved]
  - Vomiting [Recovered/Resolved]
  - Atrioventricular block first degree [Recovered/Resolved]
  - Metabolic alkalosis [Recovered/Resolved]
  - Asthenia [Recovered/Resolved]
  - Weight decreased [Recovered/Resolved]
  - Cough [Recovered/Resolved]
  - Hypokalaemia [Recovered/Resolved]

NARRATIVE: CASE EVENT DATE: 20150724
